FAERS Safety Report 7955809-4 (Version None)
Quarter: 2011Q4

REPORT INFORMATION
  Report Type: 
  Country: None (occurrence: None)
  Receive Date: 20111205
  Receipt Date: 20111128
  Transmission Date: 20120403
  Serious: Yes (Hospitalization)
  Sender: FDA-Public Use
  Company Number: US-BIOGENIDEC-2007BI015865

PATIENT
  Age: 61 Year
  Sex: Female

DRUGS (2)
  1. AVONEX [Suspect]
     Indication: MULTIPLE SCLEROSIS
     Route: 030
     Dates: start: 20000101
  2. AVONEX [Suspect]
     Route: 030

REACTIONS (5)
  - SPLENIC RUPTURE [None]
  - WEGENER'S GRANULOMATOSIS [None]
  - DEVICE ISSUE [None]
  - INTRA-ABDOMINAL HAEMORRHAGE [None]
  - SHOCK [None]
